FAERS Safety Report 11649678 (Version 1)
Quarter: 2015Q4

REPORT INFORMATION
  Report Type: Spontaneous
  Country: US (occurrence: US)
  Receive Date: 20151021
  Receipt Date: 20151021
  Transmission Date: 20160304
  Serious: No
  Sender: FDA-Public Use
  Company Number: US-TARO-2015TAR00701

PATIENT
  Sex: Female
  Weight: 49.89 kg

DRUGS (5)
  1. LEVOTHYROXINE. [Concomitant]
     Active Substance: LEVOTHYROXINE
  2. TOPICORT [Suspect]
     Active Substance: DESOXIMETASONE
     Dosage: UNK, ONCE
     Route: 047
     Dates: start: 20150724, end: 20150724
  3. LOVASTATIN. [Concomitant]
     Active Substance: LOVASTATIN
  4. MULTIVITAMIN [Concomitant]
     Active Substance: VITAMINS
  5. TOPICORT [Suspect]
     Active Substance: DESOXIMETASONE
     Indication: PIGMENTATION DISORDER
     Dosage: UNK %, UNK
     Route: 061

REACTIONS (2)
  - Accidental exposure to product [Recovered/Resolved]
  - Eye pain [Recovered/Resolved]

NARRATIVE: CASE EVENT DATE: 20150724
